FAERS Safety Report 23339064 (Version 1)
Quarter: 2023Q4

REPORT INFORMATION
  Report Type: Spontaneous
  Country: US (occurrence: None)
  Receive Date: 20231222
  Receipt Date: 20231222
  Transmission Date: 20240110
  Serious: Yes (unspecified)
  Sender: FDA-Public Use
  Company Number: None

PATIENT
  Age: 79 Year
  Sex: Female
  Weight: 82 kg

DRUGS (1)
  1. CICLOPIROX 8% / FLUCONAZOLE 1% / TERBINAFINE HCL 1% [Suspect]
     Active Substance: CICLOPIROX\FLUCONAZOLE\TERBINAFINE
     Indication: Onychomycosis
     Dosage: FREQUENCY : AT BEDTIME;?
     Route: 061
     Dates: start: 20230707, end: 20231212

REACTIONS (3)
  - Onychoclasis [None]
  - Nail bed bleeding [None]
  - Nail discolouration [None]

NARRATIVE: CASE EVENT DATE: 20230707
